FAERS Safety Report 9277132 (Version 2)
Quarter: 2013Q2

REPORT INFORMATION
  Report Type: Report from Study
  Country: US (occurrence: US)
  Receive Date: 20130507
  Receipt Date: 20130514
  Transmission Date: 20140414
  Serious: Yes (Hospitalization)
  Sender: FDA-Public Use
  Company Number: US-US-EMD SERONO, INC.-7208570

PATIENT
  Age: 57 Year
  Sex: Male
  Weight: 67 kg

DRUGS (12)
  1. SEROSTIM [(SOMATROPIN (RDNA ORIGIN) FOR INJECTION)] [Suspect]
     Indication: CACHEXIA
     Route: 058
     Dates: start: 20120106
  2. DOXYCYCLINE [Concomitant]
     Indication: PRODUCT USED FOR UNKNOWN INDICATION
     Route: 048
     Dates: start: 20110412
  3. ACYCLOVIR                          /00587301/ [Concomitant]
     Indication: PRODUCT USED FOR UNKNOWN INDICATION
     Route: 048
     Dates: start: 20080508
  4. METFORMIN [Concomitant]
     Indication: DIABETES MELLITUS
     Route: 048
     Dates: start: 20080327
  5. NIASPAN [Concomitant]
     Indication: BLOOD TRIGLYCERIDES INCREASED
     Route: 048
     Dates: start: 20121030
  6. CYMBALTA [Concomitant]
     Indication: DEPRESSION
     Route: 048
     Dates: start: 20080327
  7. ZOLOFT                             /01011401/ [Concomitant]
     Indication: DEPRESSION
     Route: 048
     Dates: start: 20130215
  8. MARINOL [Concomitant]
     Indication: WEIGHT INCREASED
     Route: 048
     Dates: start: 20101213
  9. LOMOTIL                            /00034001/ [Concomitant]
     Indication: DIARRHOEA
     Route: 048
     Dates: start: 20090513
  10. SUSTIVA [Concomitant]
     Indication: HIV INFECTION
     Route: 048
     Dates: start: 20081124
  11. VIDEX [Concomitant]
     Indication: HIV INFECTION
     Route: 048
     Dates: start: 20081124
  12. REYATAZ [Concomitant]
     Indication: HIV INFECTION
     Dosage: 2 TWICE DAILY
     Route: 048
     Dates: start: 20081124

REACTIONS (3)
  - Large intestine polyp [Recovered/Resolved]
  - Weight decreased [Unknown]
  - Decreased appetite [Unknown]
